FAERS Safety Report 10110866 (Version 1)
Quarter: 2014Q2

REPORT INFORMATION
  Report Type: Spontaneous
  Country: US (occurrence: US)
  Receive Date: 20140425
  Receipt Date: 20140425
  Transmission Date: 20141212
  Serious: No
  Sender: FDA-Public Use
  Company Number: US-BAYER-2014-050371

PATIENT
  Sex: Male

DRUGS (2)
  1. DESONIDE(HYDROXYPREDNISOLONE ACETONIDE [Suspect]
     Indication: ECZEMA
     Dosage: UNK UNK, PRN
     Route: 061
  2. DESONIDE [HYDROXYPREDNISOLONE ACETONIDE] [Suspect]
     Indication: ECZEMA

REACTIONS (1)
  - Therapeutic product ineffective [None]
